FAERS Safety Report 18104400 (Version 1)
Quarter: 2020Q3

REPORT INFORMATION
  Report Type: Spontaneous
  Country: US (occurrence: US)
  Receive Date: 20200803
  Receipt Date: 20200803
  Transmission Date: 20201103
  Serious: Yes (Other)
  Sender: FDA-Public Use
  Company Number: None

PATIENT
  Age: 67 Year
  Sex: Male
  Weight: 60.75 kg

DRUGS (12)
  1. LUPRON [Concomitant]
     Active Substance: LEUPROLIDE ACETATE
  2. PAMIDRONATE [Concomitant]
     Active Substance: PAMIDRONATE DISODIUM
  3. FOLIVANE?PLUS [Concomitant]
  4. PRAVASTATIN. [Concomitant]
     Active Substance: PRAVASTATIN
  5. VITAMIN D [Concomitant]
     Active Substance: VITAMIN D NOS
  6. PROAIR HFA [Concomitant]
     Active Substance: ALBUTEROL SULFATE
  7. ERLEADA [Suspect]
     Active Substance: APALUTAMIDE
     Indication: PROSTATE CANCER
     Route: 048
     Dates: start: 20200707
  8. CYCLOBENZAPRINE. [Concomitant]
     Active Substance: CYCLOBENZAPRINE
  9. ASPIRIN. [Concomitant]
     Active Substance: ASPIRIN
  10. LISINOPRIL. [Concomitant]
     Active Substance: LISINOPRIL
  11. XARELTO [Concomitant]
     Active Substance: RIVAROXABAN
  12. CARVEDILOL. [Concomitant]
     Active Substance: CARVEDILOL

REACTIONS (4)
  - Nausea [None]
  - Decreased appetite [None]
  - Fatigue [None]
  - Diarrhoea [None]

NARRATIVE: CASE EVENT DATE: 20200803
